FAERS Safety Report 10960700 (Version 1)
Quarter: 2015Q1

REPORT INFORMATION
  Report Type: Spontaneous
  Country: JP (occurrence: None)
  Receive Date: 20150325
  Receipt Date: 20150325
  Transmission Date: 20150721
  Serious: Yes (Other)
  Sender: FDA-Public Use
  Company Number: JP-20150051

PATIENT
  Age: 77 Year
  Sex: Female

DRUGS (2)
  1. LIPIODOL ULTRA-FLUIDE [Suspect]
     Active Substance: ETHIODIZED OIL
     Indication: THERAPEUTIC EMBOLISATION
     Route: 013
  2. HISTOACRYL (ENBUCRILATE) [Concomitant]

REACTIONS (4)
  - Vascular pseudoaneurysm [None]
  - Loss of consciousness [None]
  - Product use issue [None]
  - Inflammation [None]
